FAERS Safety Report 20774828 (Version 1)
Quarter: 2022Q2

REPORT INFORMATION
  Report Type: Spontaneous
  Country: US (occurrence: US)
  Receive Date: 20220502
  Receipt Date: 20220502
  Transmission Date: 20220721
  Serious: No
  Sender: FDA-Public Use
  Company Number: US-ORGANON-O2204USA002218

PATIENT
  Age: 21 Year
  Sex: Female

DRUGS (2)
  1. NUVARING [Suspect]
     Active Substance: ETHINYL ESTRADIOL\ETONOGESTREL
     Indication: Endometriosis
     Dosage: 1 DOSAGE FORM
     Route: 067
     Dates: start: 201903
  2. LUPRON [Concomitant]
     Active Substance: LEUPROLIDE ACETATE

REACTIONS (7)
  - Mood swings [Unknown]
  - Depression [Unknown]
  - Alopecia [Unknown]
  - Decreased appetite [Unknown]
  - Heavy menstrual bleeding [Unknown]
  - Product use in unapproved indication [Unknown]
  - Product prescribing issue [Unknown]

NARRATIVE: CASE EVENT DATE: 20190301
